FAERS Safety Report 11086360 (Version 1)
Quarter: 2015Q2

REPORT INFORMATION
  Report Type: Spontaneous
  Country: BR (occurrence: BR)
  Receive Date: 20150504
  Receipt Date: 20150504
  Transmission Date: 20150821
  Serious: Yes (Hospitalization, Other)
  Sender: FDA-Public Use
  Company Number: BR-009507513-1504BRA023282

PATIENT
  Age: 17 Year
  Sex: Female
  Weight: 53 kg

DRUGS (1)
  1. IMPLANON [Suspect]
     Active Substance: ETONOGESTREL
     Indication: CONTRACEPTION
     Dosage: UNK
     Route: 058
     Dates: start: 20141020

REACTIONS (10)
  - Headache [Not Recovered/Not Resolved]
  - Endocervical curettage [Unknown]
  - Menstruation irregular [Not Recovered/Not Resolved]
  - Amenorrhoea [Recovered/Resolved]
  - Menstruation irregular [Recovered/Resolved]
  - Abdominal distension [Recovered/Resolved]
  - Unintended pregnancy [Recovered/Resolved]
  - Abdominal pain [Not Recovered/Not Resolved]
  - Abortion [Recovered/Resolved]
  - Induration [Recovered/Resolved]

NARRATIVE: CASE EVENT DATE: 201411
